FAERS Safety Report 7001484-5 (Version None)
Quarter: 2010Q3

REPORT INFORMATION
  Report Type: 
  Country: None (occurrence: None)
  Receive Date: 20100920
  Receipt Date: 20100914
  Transmission Date: 20110219
  Serious: Yes (Life-Threatening, Other)
  Sender: FDA-Public Use
  Company Number: FR-ASTRAZENECA-2010SE43072

PATIENT
  Age: 14632 Day
  Sex: Female

DRUGS (4)
  1. SYMBICORT [Suspect]
     Route: 055
     Dates: start: 20040101
  2. AERIUS [Suspect]
     Route: 048
     Dates: start: 20040101
  3. ALLERGODIL [Suspect]
     Route: 047
     Dates: start: 20050101
  4. CELESTAMINE TAB [Suspect]
     Route: 048
     Dates: start: 20040101

REACTIONS (1)
  - CARDIO-RESPIRATORY ARREST [None]
